FAERS Safety Report 7501405-2 (Version None)
Quarter: 2011Q2

REPORT INFORMATION
  Report Type: 
  Country: None (occurrence: None)
  Receive Date: 20110524
  Receipt Date: 20110516
  Transmission Date: 20111010
  Serious: Yes (Other)
  Sender: FDA-Public Use
  Company Number: JP-B.I. PHARMACEUTICALS,INC./RIDGEFIELD-2011-BP-02408NB

PATIENT
  Sex: Male
  Weight: 93 kg

DRUGS (1)
  1. MICARDIS [Suspect]
     Indication: HYPERTENSION
     Dosage: 40 MG
     Route: 048
     Dates: start: 20110201, end: 20110203

REACTIONS (4)
  - LOSS OF CONSCIOUSNESS [None]
  - NAUSEA [None]
  - ROAD TRAFFIC ACCIDENT [None]
  - VERTIGO [None]
